FAERS Safety Report 7194129-5 (Version None)
Quarter: 2010Q4

REPORT INFORMATION
  Report Type: 
  Country: None (occurrence: None)
  Receive Date: 20101124
  Receipt Date: 20100921
  Transmission Date: 20110411
  Serious: No
  Sender: FDA-Public Use
  Company Number: 019120

PATIENT
  Sex: Male
  Weight: 29.4 kg

DRUGS (3)
  1. LACOSAMIDE [Suspect]
     Indication: CONVULSION
     Dosage: (100 MG BID ORAL)
     Route: 048
     Dates: start: 20100830
  2. DEPAKOTE [Concomitant]
  3. LEVETIRACETAM [Concomitant]

REACTIONS (1)
  - DIARRHOEA [None]
